FAERS Safety Report 7503638-8 (Version None)
Quarter: 2011Q2

REPORT INFORMATION
  Report Type: 
  Country: None (occurrence: None)
  Receive Date: 20110524
  Receipt Date: 20110524
  Transmission Date: 20111010
  Serious: Yes (Life-Threatening, Other)
  Sender: FDA-Public Use
  Company Number: None

PATIENT
  Age: 50 Year
  Sex: Female
  Weight: 77.1115 kg

DRUGS (2)
  1. EFFEXOR XR [Suspect]
     Indication: HOT FLUSH
     Dosage: 150MG 1 DAILY PO
     Route: 048
     Dates: start: 20050406, end: 20110524
  2. EFFEXOR XR [Suspect]
     Indication: MENOPAUSAL SYMPTOMS
     Dosage: 150MG 1 DAILY PO
     Route: 048
     Dates: start: 20050406, end: 20110524

REACTIONS (7)
  - COLD-STIMULUS HEADACHE [None]
  - NIGHT SWEATS [None]
  - SUICIDAL IDEATION [None]
  - NAUSEA [None]
  - DIZZINESS [None]
  - DRUG WITHDRAWAL SYNDROME [None]
  - MOOD SWINGS [None]
